FAERS Safety Report 6758928-3 (Version None)
Quarter: 2010Q2

REPORT INFORMATION
  Report Type: 
  Country: None (occurrence: None)
  Receive Date: 20100603
  Receipt Date: 20100521
  Transmission Date: 20101027
  Serious: Yes (Life-Threatening)
  Sender: FDA-Public Use
  Company Number: 201005AGG00933

PATIENT
  Age: 62 Year
  Sex: Male

DRUGS (6)
  1. AGGRASTAT [Suspect]
     Indication: ISCHAEMIC HEART DISEASE PROPHYLAXIS
     Dosage: 144 MICROGRAM/KG/DAILY INTRAVENOUS (NOT OTHERWISE SPECIFIED)
     Route: 042
     Dates: start: 20100211, end: 20100221
  2. CILASTATIN SODIUM [Concomitant]
  3. AUGEMENT /00756801/ [Concomitant]
  4. CIPROFLOXACIN LACTATE [Concomitant]
  5. IMIPENEM [Concomitant]
  6. OMEPROZOLE [Concomitant]

REACTIONS (2)
  - HYPERBILIRUBINAEMIA [None]
  - THROMBOCYTOPENIA [None]
